FAERS Safety Report 15598116 (Version 1)
Quarter: 2018Q4

REPORT INFORMATION
  Report Type: Spontaneous
  Country: US (occurrence: US)
  Receive Date: 20181108
  Receipt Date: 20181108
  Transmission Date: 20190205
  Serious: No
  Sender: FDA-Public Use
  Company Number: US-BAYER-2018-207192

PATIENT
  Age: 24 Year
  Sex: Female
  Weight: 57 kg

DRUGS (1)
  1. MENSTRIDOL [Suspect]
     Active Substance: NAPROXEN SODIUM
     Indication: PAIN
     Dosage: UNK
     Route: 048
     Dates: start: 201810

REACTIONS (2)
  - Circumstance or information capable of leading to medication error [Unknown]
  - Expired product administered [Unknown]
